FAERS Safety Report 7391581-7 (Version None)
Quarter: 2011Q2

REPORT INFORMATION
  Report Type: 
  Country: None (occurrence: None)
  Receive Date: 20110404
  Receipt Date: 20110322
  Transmission Date: 20111010
  Serious: Yes (Disabling)
  Sender: FDA-Public Use
  Company Number: PHHO2005FR02150

PATIENT
  Sex: Female
  Weight: 57 kg

DRUGS (1)
  1. FTY 720 [Suspect]
     Indication: MULTIPLE SCLEROSIS
     Dosage: FULL DOSE
     Route: 048
     Dates: start: 20040805, end: 20050203

REACTIONS (6)
  - OBSTRUCTIVE AIRWAYS DISORDER [None]
  - RESPIRATORY GAS EXCHANGE DISORDER [None]
  - RESPIRATORY DISORDER [None]
  - CONDITION AGGRAVATED [None]
  - BRONCHOSPASM [None]
  - TACHYPNOEA [None]
